FAERS Safety Report 16337587 (Version 1)
Quarter: 2019Q2

REPORT INFORMATION
  Report Type: Spontaneous
  Country: HU (occurrence: HU)
  Receive Date: 20190521
  Receipt Date: 20190521
  Transmission Date: 20190711
  Serious: Yes (Hospitalization, Other)
  Sender: FDA-Public Use
  Company Number: PHHY2019HU112269

PATIENT
  Age: 15 Year
  Sex: Male

DRUGS (3)
  1. CLINDAMYCIN. [Suspect]
     Active Substance: CLINDAMYCIN
     Route: 048
  2. VANCOMYCIN [Suspect]
     Active Substance: VANCOMYCIN
     Indication: OSTEOMYELITIS ACUTE
     Route: 065
  3. CLINDAMYCIN. [Suspect]
     Active Substance: CLINDAMYCIN
     Indication: OSTEOMYELITIS ACUTE
     Route: 042

REACTIONS (7)
  - Resorption bone increased [Recovered/Resolved]
  - C-reactive protein increased [Unknown]
  - Necrotising soft tissue infection [Recovered/Resolved]
  - Drug resistance [Unknown]
  - Bone abscess [Recovered/Resolved]
  - Bone disorder [Recovered/Resolved]
  - Fasciitis [Recovered/Resolved]
